FAERS Safety Report 10308837 (Version 7)
Quarter: 2016Q1

REPORT INFORMATION
  Report Type: Report from Study
  Country: JP (occurrence: JP)
  Receive Date: 20140716
  Receipt Date: 20160225
  Transmission Date: 20160525
  Serious: Yes (Hospitalization, Other)
  Sender: FDA-Public Use
  Company Number: JP-B.I. PHARMACEUTICALS,INC./RIDGEFIELD-2014-BI-32068BI

PATIENT
  Age: 69 Year
  Sex: Male
  Weight: 53.5 kg

DRUGS (30)
  1. HACHIAZULE [Concomitant]
     Indication: PROPHYLAXIS
     Dosage: ROUTE: EXTERNAL, FORMULATION GARGLE
     Route: 050
  2. BIBW 2992 [Suspect]
     Active Substance: AFATINIB
     Indication: SQUAMOUS CELL CARCINOMA OF HEAD AND NECK
     Dosage: 40 MG
     Route: 048
     Dates: start: 20130814, end: 20131105
  3. BIBW 2992 [Suspect]
     Active Substance: AFATINIB
     Dosage: 20 MG
     Route: 048
     Dates: start: 20140528, end: 20140708
  4. MEDICON [Concomitant]
     Active Substance: DEXTROMETHORPHAN HYDROBROMIDE
     Indication: PRODUCTIVE COUGH
     Dosage: 0.6 G
     Route: 048
     Dates: start: 20140123, end: 20140709
  5. DRENISON [Concomitant]
     Active Substance: FLURANDRENOLIDE
     Dosage: 60 MG
     Route: 048
     Dates: start: 20140324, end: 20140709
  6. MUCODYNE DS [Concomitant]
     Indication: PRODUCTIVE COUGH
     Dosage: 3 G
     Route: 048
     Dates: end: 20140709
  7. TAMSULOSIN HYDROCHLORIDE OD [Concomitant]
     Active Substance: TAMSULOSIN HYDROCHLORIDE
     Indication: BENIGN PROSTATIC HYPERPLASIA
     Dosage: 0.2 MG
     Route: 048
     Dates: end: 20140709
  8. DETRUSITOL [Concomitant]
     Active Substance: TOLTERODINE TARTRATE
     Indication: BENIGN PROSTATIC HYPERPLASIA
     Dosage: 4 MG
     Route: 048
     Dates: end: 20140709
  9. RINDERON VG [Concomitant]
     Active Substance: BETAMETHASONE VALERATE\GENTAMICIN SULFATE
     Indication: PALMAR-PLANTAR ERYTHRODYSAESTHESIA SYNDROME
     Route: 061
     Dates: start: 20130925, end: 20140923
  10. MAGNESIUM OXIDE. [Concomitant]
     Active Substance: MAGNESIUM OXIDE
     Indication: CONSTIPATION
     Dosage: 0.5 G
     Route: 048
     Dates: start: 20140424, end: 20140709
  11. GASTER [Concomitant]
     Active Substance: FAMOTIDINE
     Indication: GASTRITIS
     Dosage: 10 MG
     Route: 048
     Dates: end: 20140712
  12. ENSURE [Concomitant]
     Active Substance: AMINO ACIDS\DEXTROSE\ELECTROLYTES NOS\SOYBEAN OIL\VITAMINS
     Indication: NUTRITIONAL SUPPLEMENTATION
     Dosage: FORMULATION: LIQUID
     Route: 061
  13. RINDERON VG [Concomitant]
     Active Substance: BETAMETHASONE VALERATE\GENTAMICIN SULFATE
     Indication: RASH
     Route: 061
     Dates: start: 20130904, end: 20140923
  14. CODEINE PHOSPHATE [Concomitant]
     Active Substance: CODEINE PHOSPHATE
     Indication: PRODUCTIVE COUGH
     Dosage: 6 G
     Route: 048
     Dates: start: 20130904, end: 20140709
  15. DEXALTIN [Concomitant]
     Active Substance: DEXAMETHASONE
     Indication: STOMATITIS
     Dosage: FORMULATION: ORAL OINTMENT
     Route: 061
     Dates: start: 20131127, end: 20140709
  16. HIRUDOID SOFT [Concomitant]
     Indication: RASH
     Route: 061
     Dates: start: 20131030, end: 20140923
  17. SAHNE [Concomitant]
     Indication: PALMAR-PLANTAR ERYTHRODYSAESTHESIA SYNDROME
     Route: 061
     Dates: start: 20140326, end: 20140709
  18. SERENAL [Concomitant]
     Active Substance: OXAZOLAM
     Indication: INSOMNIA
     Dosage: 200 MG
     Route: 048
     Dates: end: 20140712
  19. THYRADIN-S [Concomitant]
     Active Substance: LEVOTHYROXINE
     Indication: HYPOTHYROIDISM
     Dosage: 25 MCG
     Route: 048
  20. DERMOVATE [Concomitant]
     Active Substance: CLOBETASOL
     Indication: PARONYCHIA
     Route: 061
     Dates: start: 20131106, end: 20140709
  21. DRENISON [Concomitant]
     Active Substance: FLURANDRENOLIDE
     Indication: PALMAR-PLANTAR ERYTHRODYSAESTHESIA SYNDROME
     Route: 061
     Dates: start: 20140326, end: 20140828
  22. BIBW 2992 [Suspect]
     Active Substance: AFATINIB
     Dosage: 30 MG
     Route: 048
     Dates: start: 20131118, end: 20140513
  23. BORRAGINOL [Concomitant]
     Indication: HAEMORRHOIDS
     Dosage: ROUTE: EXTERNAL
     Route: 050
  24. LOCOID [Concomitant]
     Active Substance: HYDROCORTISONE BUTYRATE
     Indication: RASH
     Route: 061
     Dates: start: 20130822, end: 20140811
  25. DERMOVATE [Concomitant]
     Active Substance: CLOBETASOL
     Indication: PALMAR-PLANTAR ERYTHRODYSAESTHESIA SYNDROME
     Route: 061
     Dates: start: 20131009, end: 20140709
  26. LOXONIN [Concomitant]
     Active Substance: LOXOPROFEN SODIUM
     Indication: PARONYCHIA
     Dosage: 60 MG
     Route: 048
     Dates: start: 20140105, end: 20140709
  27. HARNAL [Concomitant]
     Active Substance: TAMSULOSIN HYDROCHLORIDE
     Indication: BENIGN PROSTATIC HYPERPLASIA
     Dosage: 0.2 MG
     Route: 048
     Dates: end: 20140712
  28. CLARITIN [Concomitant]
     Active Substance: LORATADINE
     Indication: RASH
     Dosage: 10 MG
     Route: 048
     Dates: start: 20130905, end: 20140712
  29. MINOMYCIN [Concomitant]
     Active Substance: MINOCYCLINE HYDROCHLORIDE
     Indication: RASH
     Dosage: 100 MG
     Route: 048
     Dates: start: 20130925, end: 20140709
  30. LOXONIN [Concomitant]
     Active Substance: LOXOPROFEN SODIUM
     Indication: PALMAR-PLANTAR ERYTHRODYSAESTHESIA SYNDROME
     Dosage: 60 MG
     Route: 048
     Dates: start: 20140324, end: 20140709

REACTIONS (2)
  - Deep vein thrombosis [Recovered/Resolved]
  - Pulmonary embolism [Recovered/Resolved]

NARRATIVE: CASE EVENT DATE: 20140709
